FAERS Safety Report 8393079-6 (Version None)
Quarter: 2012Q2

REPORT INFORMATION
  Report Type: 
  Country: None (occurrence: None)
  Receive Date: 20120529
  Receipt Date: 20120321
  Transmission Date: 20120825
  Serious: No
  Sender: FDA-Public Use
  Company Number: US-ABBOTT-12P-163-0921248-00

PATIENT
  Age: 64 Year
  Sex: Male
  Weight: 83.99 kg

DRUGS (5)
  1. ANDROGEL [Suspect]
     Dosage: 2 PUMPS PER DAY
     Dates: start: 20110401
  2. SIMVASTATIN [Concomitant]
     Indication: BLOOD CHOLESTEROL
  3. ANDROGEL [Suspect]
     Indication: BLOOD TESTOSTERONE DECREASED
     Dosage: 4 PUMPS PER DAY
     Dates: start: 20110101, end: 20110101
  4. ANDROGEL [Suspect]
     Dosage: 3 PUMPS PER DAY
     Dates: start: 20110801
  5. ANDROGEL [Suspect]
     Dosage: 3 PUMPS PER DAY

REACTIONS (3)
  - ASTHENIA [None]
  - DRUG INEFFECTIVE [None]
  - INCORRECT DOSE ADMINISTERED [None]
